FAERS Safety Report 7397203-3 (Version None)
Quarter: 2011Q2

REPORT INFORMATION
  Report Type: 
  Country: None (occurrence: None)
  Receive Date: 20110406
  Receipt Date: 20110328
  Transmission Date: 20111010
  Serious: Yes (Hospitalization)
  Sender: FDA-Public Use
  Company Number: US-EISAI INC-E7389-01141-CLI-US

PATIENT
  Sex: Female

DRUGS (29)
  1. OMEPRAZOLE [Concomitant]
     Route: 048
     Dates: start: 19890101
  2. FISH OIL [Concomitant]
     Route: 048
     Dates: start: 20000101
  3. MULTI-VITAMINS [Concomitant]
     Route: 048
     Dates: start: 20000101
  4. PEMETREXED [Suspect]
     Indication: NON-SMALL CELL LUNG CANCER
     Route: 041
     Dates: start: 20100813
  5. FOLIC ACID [Concomitant]
     Route: 048
     Dates: start: 20100805
  6. ALOXI [Concomitant]
     Route: 042
     Dates: start: 20100923, end: 20100923
  7. FEXOFENADINE [Concomitant]
     Dosage: UNKOWN
     Route: 048
     Dates: start: 20070101
  8. E7389 (BOLD) [Suspect]
     Indication: NON-SMALL CELL LUNG CANCER
     Route: 041
     Dates: start: 20100813
  9. VITAMIN B6 [Concomitant]
     Route: 048
     Dates: start: 20100301
  10. IBUPROFEN [Concomitant]
     Route: 048
     Dates: start: 20090903
  11. ALPRAZOLAM [Concomitant]
     Indication: ANXIETY
     Route: 048
     Dates: start: 20100506
  12. ALOXI [Concomitant]
     Indication: NAUSEA
     Route: 042
     Dates: start: 20101014, end: 20101014
  13. CALCIUM [Concomitant]
     Indication: OSTEOPENIA
     Route: 048
     Dates: start: 20050101
  14. ASPIRIN [Concomitant]
     Route: 048
     Dates: start: 19990101
  15. VITAMIN D [Concomitant]
     Indication: OSTEOPENIA
     Route: 048
     Dates: start: 20050101
  16. SIMVASTATIN [Concomitant]
     Indication: HYPERCHOLESTEROLAEMIA
     Route: 048
     Dates: start: 20030101
  17. TRIAMCINOLONE ACETONIDE [Concomitant]
     Indication: RASH
     Route: 061
     Dates: start: 20090801
  18. TESSALON [Concomitant]
     Indication: PAIN
  19. ATIVAN [Concomitant]
     Indication: ANXIETY
     Route: 048
     Dates: start: 20090811
  20. VICODIN [Concomitant]
     Indication: PAIN
     Route: 048
     Dates: start: 20090821
  21. METOPROLOL TARTRATE [Concomitant]
     Indication: HYPERTENSION
     Route: 048
     Dates: start: 20090724
  22. ZOLOFT [Concomitant]
     Indication: DEPRESSION
     Route: 048
     Dates: start: 20100301
  23. ALOXI [Concomitant]
     Route: 042
     Dates: start: 20100813, end: 20100813
  24. DEXAMETHASONE [Concomitant]
     Route: 048
     Dates: start: 20100812
  25. TESSALON [Concomitant]
     Route: 048
     Dates: start: 20110113
  26. ACETAMINOPHEN [Concomitant]
     Indication: HEADACHE
     Route: 048
     Dates: start: 20100910
  27. ALOXI [Concomitant]
     Route: 042
     Dates: start: 20100902, end: 20100902
  28. DETROL LA [Concomitant]
     Indication: INCONTINENCE
     Route: 048
     Dates: start: 20010101
  29. ASCORBIC ACID [Concomitant]
     Route: 048
     Dates: start: 20050101

REACTIONS (2)
  - PULMONARY EMBOLISM [None]
  - DYSPNOEA [None]
